FAERS Safety Report 5386445-4 (Version None)
Quarter: 2007Q3

REPORT INFORMATION
  Report Type: 
  Country: None (occurrence: None)
  Receive Date: 20070710
  Receipt Date: 20070705
  Transmission Date: 20080115
  Serious: Yes (Other)
  Sender: FDA-Public Use
  Company Number: TCI2007A03032

PATIENT
  Age: 63 Year
  Sex: Female

DRUGS (8)
  1. LANSAP 800 (LANSOPRAZOLE, CLARITHROMYCIN, AMOXICILLIN) [Suspect]
     Indication: HELICOBACTER PYLORI IDENTIFICATION TEST POSITIVE
     Dosage: 1 CARD (0.5 CARD, 2 IN 1 D) PER ORAL
     Route: 048
     Dates: start: 20070612, end: 20070618
  2. LANSOPRAZOLE [Suspect]
     Indication: DUODENAL ULCER
     Dosage: 30 MG (30 MG, 1 IN 1 D) PER ORAL
     Route: 048
     Dates: start: 20070619, end: 20070619
  3. RIMATIL                  (BUCILLAMINE) [Concomitant]
  4. PREDNISOLONE [Concomitant]
  5. MUCOSTA                (REBAMIPIDE) [Concomitant]
  6. SUCRALFATE [Concomitant]
  7. MOHRUS               (KETOPROFEN) [Concomitant]
  8. MAALOX            (ALUMINIUM HYDROXIDE/MAGNESIUM HYDROXIDE) [Concomitant]

REACTIONS (2)
  - VISUAL ACUITY REDUCED [None]
  - VISUAL FIELD DEFECT [None]
